FAERS Safety Report 5787912-1 (Version None)
Quarter: 2008Q2

REPORT INFORMATION
  Report Type: 
  Country: None (occurrence: None)
  Receive Date: 20080624
  Receipt Date: 20080624
  Transmission Date: 20081010
  Serious: No
  Sender: FDA-Public Use
  Company Number: None

PATIENT
  Age: 66 Year
  Sex: Male
  Weight: 87.0906 kg

DRUGS (2)
  1. DIGOXIN [Suspect]
     Indication: CHRONIC OBSTRUCTIVE PULMONARY DISEASE
     Dosage: I TAB DAILY PO
     Route: 048
     Dates: start: 20000106, end: 20080623
  2. DIGOXIN [Suspect]
     Indication: HEART RATE
     Dosage: I TAB DAILY PO
     Route: 048
     Dates: start: 20000106, end: 20080623

REACTIONS (6)
  - CONFUSIONAL STATE [None]
  - DECREASED APPETITE [None]
  - FATIGUE [None]
  - HALO VISION [None]
  - HEART RATE INCREASED [None]
  - HEART RATE IRREGULAR [None]
